FAERS Safety Report 7441874-X (Version None)
Quarter: 2011Q2

REPORT INFORMATION
  Report Type: 
  Country: None (occurrence: None)
  Receive Date: 20110428
  Receipt Date: 20110415
  Transmission Date: 20111010
  Serious: Yes (Hospitalization, Other)
  Sender: FDA-Public Use
  Company Number: US-ELI_LILLY_AND_COMPANY-US201104005133

PATIENT
  Age: 65 Year
  Sex: Female

DRUGS (14)
  1. LASIX [Concomitant]
     Dosage: UNK, UNKNOWN
     Route: 065
  2. CYMBALTA [Suspect]
     Indication: DEPRESSION
     Dosage: 20 MG, QD
     Route: 051
  3. VALIUM [Concomitant]
     Dosage: UNK, PRN
     Route: 065
  4. ZEGERID [Concomitant]
     Dosage: UNK, UNKNOWN
     Route: 065
  5. TYLENOL                                 /SCH/ [Concomitant]
     Dosage: UNK, PRN
     Route: 065
  6. FENTANYL [Concomitant]
     Dosage: UNK, UNKNOWN
     Route: 062
  7. LACTULOSE [Concomitant]
     Dosage: UNK, UNKNOWN
     Route: 065
  8. DILAUDID [Concomitant]
     Dosage: UNK, UNKNOWN
     Route: 065
  9. SOMA [Concomitant]
     Dosage: UNK, UNKNOWN
     Route: 065
  10. METHADONE [Concomitant]
     Dosage: UNK UNK, UNKNOWN
     Route: 065
  11. ZYPREXA [Suspect]
     Indication: DEPRESSION
     Dosage: 5 MG, QD
     Route: 051
  12. COLACE [Concomitant]
     Dosage: UNK, UNKNOWN
     Route: 065
  13. SPIRONOLACTONE [Concomitant]
     Dosage: UNK, UNKNOWN
     Route: 065
  14. NEURONTIN [Concomitant]
     Dosage: UNK, UNKNOWN
     Route: 065

REACTIONS (11)
  - PERITONITIS [None]
  - INCORRECT ROUTE OF DRUG ADMINISTRATION [None]
  - METASTATIC SQUAMOUS CELL CARCINOMA [None]
  - LARYNGEAL CANCER [None]
  - PLATELET DISORDER [None]
  - NEOPLASM MALIGNANT [None]
  - OFF LABEL USE [None]
  - HOSPITALISATION [None]
  - GENERAL PHYSICAL HEALTH DETERIORATION [None]
  - PEPTIC ULCER [None]
  - DYSPHAGIA [None]
